FAERS Safety Report 11457009 (Version 1)
Quarter: 2015Q3

REPORT INFORMATION
  Report Type: Spontaneous
  Country: PL (occurrence: PL)
  Receive Date: 20150904
  Receipt Date: 20150904
  Transmission Date: 20151125
  Serious: Yes (Other)
  Sender: FDA-Public Use
  Company Number: PL-ROCHE-1630003

PATIENT
  Age: 65 Year
  Sex: Female

DRUGS (1)
  1. RANIBIZUMAB [Suspect]
     Active Substance: RANIBIZUMAB
     Indication: NEOVASCULAR AGE-RELATED MACULAR DEGENERATION
     Route: 050

REACTIONS (5)
  - Subretinal fluid [Unknown]
  - Detachment of retinal pigment epithelium [Unknown]
  - Retinal oedema [Unknown]
  - Choroidal neovascularisation [Unknown]
  - Retinal scar [Unknown]
